FAERS Safety Report 5133706-X (Version None)
Quarter: 2006Q4

REPORT INFORMATION
  Report Type: 
  Country: None (occurrence: None)
  Receive Date: 20061024
  Receipt Date: 20061013
  Transmission Date: 20070319
  Serious: Yes (Death)
  Sender: FDA-Public Use
  Company Number: GT-ROCHE-467048

PATIENT
  Age: 28 Year
  Sex: Female

DRUGS (4)
  1. RIVOTRIL [Suspect]
     Dosage: DOSE GIVEN AT 06:00 HOURS
     Route: 048
     Dates: start: 20060909, end: 20060909
  2. RIVOTRIL [Suspect]
     Dosage: DOSE GIVEN AT 21:00 HOURS
     Route: 048
     Dates: start: 20060910, end: 20060910
  3. OLANZAPINE [Suspect]
     Dosage: DOSE GIVEN AT 10:00 HOURS
     Route: 048
     Dates: start: 20060909, end: 20060909
  4. OLANZAPINE [Suspect]
     Dosage: DOSE GIVEN AT 21:00 HOURS.
     Route: 048
     Dates: start: 20060910, end: 20060910

REACTIONS (2)
  - CARDIO-RESPIRATORY ARREST [None]
  - SUDDEN DEATH [None]
